FAERS Safety Report 5332399-6 (Version None)
Quarter: 2007Q2

REPORT INFORMATION
  Report Type: 
  Country: None (occurrence: None)
  Receive Date: 20070521
  Receipt Date: 20070521
  Transmission Date: 20071010
  Serious: Yes (Other)
  Sender: FDA-Public Use
  Company Number: None

PATIENT
  Age: 67 Year
  Sex: Female
  Weight: 58.9676 kg

DRUGS (3)
  1. LEVOTHYROXINE SODIUM [Suspect]
     Indication: HYPOTHYROIDISM
     Dosage: ONE AND ONE HALF TABLET A DAY  ONCE A DAY  INTRACAVERN
     Route: 017
     Dates: start: 20070401, end: 20070501
  2. LEVOTHYROXINE SODIUM [Suspect]
     Indication: HYPOTHYROIDISM
     Dosage: ONE AND ONE HALF TABLET A DAY  ONCE A DAY  INTRACAVERN
     Route: 017
     Dates: start: 20070501, end: 20070501
  3. LEVOTHYROXINE SODIUM [Concomitant]

REACTIONS (16)
  - ANGINA PECTORIS [None]
  - CHOKING [None]
  - COUGH [None]
  - DRY MOUTH [None]
  - FREQUENT BOWEL MOVEMENTS [None]
  - MALAISE [None]
  - PAIN [None]
  - PALPITATIONS [None]
  - PHARMACEUTICAL PRODUCT COMPLAINT [None]
  - PHARYNGOLARYNGEAL PAIN [None]
  - RASH [None]
  - RASH PRURITIC [None]
  - SPEECH DISORDER [None]
  - TOOTH DISORDER [None]
  - WEIGHT INCREASED [None]
  - WHEEZING [None]
